FAERS Safety Report 4461483-4 (Version None)
Quarter: 2004Q3

REPORT INFORMATION
  Report Type: 
  Country: None (occurrence: None)
  Receive Date: 20040916
  Receipt Date: 20040826
  Transmission Date: 20050211
  Serious: Yes (Other)
  Sender: FDA-Public Use
  Company Number: 200410145BBE

PATIENT
  Sex: Male

DRUGS (2)
  1. GAMIMUNE N 10% [Suspect]
     Indication: HYPOGAMMAGLOBULINAEMIA
  2. IMMUNOGLOBULIN (BAXTER) (IMMUNOGLUBULINS) [Concomitant]

REACTIONS (2)
  - HEPATITIS B [None]
  - HEPATITIS C [None]
